FAERS Safety Report 21794318 (Version 1)
Quarter: 2022Q4

REPORT INFORMATION
  Report Type: Spontaneous
  Country: US (occurrence: US)
  Receive Date: 20221229
  Receipt Date: 20221229
  Transmission Date: 20230113
  Serious: No
  Sender: FDA-Public Use
  Company Number: US-PFIZER INC-202201398264

PATIENT
  Age: 44 Year
  Sex: Female

DRUGS (6)
  1. PAXLOVID [Suspect]
     Active Substance: NIRMATRELVIR\RITONAVIR
     Indication: COVID-19 treatment
     Dosage: UNK
     Dates: start: 20221216, end: 20221221
  2. OMEPRAZOLE [Concomitant]
     Active Substance: OMEPRAZOLE
     Dosage: UNK
     Dates: start: 202212, end: 202212
  3. NORETHINDRONE ACETATE AND ETHINYL ESTRADIOL [Concomitant]
     Active Substance: ETHINYL ESTRADIOL\NORETHINDRONE ACETATE
     Dosage: UNK
     Dates: start: 202212, end: 202212
  4. OLLY WOMEN^S MULTI [Concomitant]
     Dosage: GUMMIES
     Dates: start: 202212, end: 202212
  5. NATURE MADE MULTI FOR HER [Concomitant]
     Dosage: UNK
     Dates: start: 202212, end: 202212
  6. ALLERGY RELIEF [CETIRIZINE HYDROCHLORIDE] [Concomitant]
     Dates: start: 202212, end: 202212

REACTIONS (2)
  - COVID-19 [Recovering/Resolving]
  - Disease recurrence [Recovering/Resolving]

NARRATIVE: CASE EVENT DATE: 20221225
